FAERS Safety Report 11691091 (Version 1)
Quarter: 2015Q4

REPORT INFORMATION
  Report Type: Spontaneous
  Country: US (occurrence: US)
  Receive Date: 20151102
  Receipt Date: 20151102
  Transmission Date: 20160304
  Serious: No
  Sender: FDA-Public Use
  Company Number: US-009507513-1510USA014831

PATIENT
  Age: 22 Year
  Sex: Female
  Weight: 80.73 kg

DRUGS (2)
  1. NEXPLANON [Suspect]
     Active Substance: ETONOGESTREL
     Dosage: 68 MG, IMPLANT, 3 YEARS
     Route: 059
     Dates: start: 201510
  2. NEXPLANON [Suspect]
     Active Substance: ETONOGESTREL
     Indication: CONTRACEPTION
     Dosage: 68 MG, IMPLANT, 3 YEARS
     Route: 059
     Dates: start: 20151021

REACTIONS (4)
  - Pain in extremity [Not Recovered/Not Resolved]
  - Medical device complication [Recovered/Resolved]
  - Overdose [Unknown]
  - Device difficult to use [Recovered/Resolved]

NARRATIVE: CASE EVENT DATE: 201510
